FAERS Safety Report 8093560-3 (Version None)
Quarter: 2012Q1

REPORT INFORMATION
  Report Type: 
  Country: None (occurrence: None)
  Receive Date: 20120129
  Receipt Date: 20111017
  Transmission Date: 20120608
  Serious: No
  Sender: FDA-Public Use
  Company Number: US-ABBOTT-11P-163-0865699-00

PATIENT
  Sex: Female

DRUGS (2)
  1. HUMIRA [Suspect]
     Indication: CROHN'S DISEASE
     Dosage: 4 PENS, WEEK 0
     Route: 058
     Dates: start: 20110701
  2. HUMIRA [Suspect]
     Dosage: 2 PENS, AT WEEK 2

REACTIONS (2)
  - NASOPHARYNGITIS [None]
  - CROHN'S DISEASE [None]
